FAERS Safety Report 5923253-7 (Version None)
Quarter: 2008Q4

REPORT INFORMATION
  Report Type: 
  Country: None (occurrence: None)
  Receive Date: 20081020
  Receipt Date: 20081013
  Transmission Date: 20090506
  Serious: Yes (Hospitalization, Other)
  Sender: FDA-Public Use
  Company Number: US-ASTRAZENECA-2008UW22387

PATIENT
  Age: 58 Year
  Sex: Male
  Weight: 65.3 kg

DRUGS (5)
  1. SEROQUEL [Suspect]
     Indication: SCHIZOAFFECTIVE DISORDER
     Route: 048
     Dates: start: 20040301
  2. SEROQUEL [Suspect]
     Dosage: 300 MG
     Route: 048
     Dates: start: 20080101
  3. LORAZEPAM [Concomitant]
  4. BUSPAR [Concomitant]
  5. MOBIC [Concomitant]

REACTIONS (5)
  - ANXIETY [None]
  - BURNOUT SYNDROME [None]
  - INAPPROPRIATE SCHEDULE OF DRUG ADMINISTRATION [None]
  - INSOMNIA [None]
  - SUICIDAL IDEATION [None]
